FAERS Safety Report 6010649-0 (Version None)
Quarter: 2008Q4

REPORT INFORMATION
  Report Type: 
  Country: None (occurrence: None)
  Receive Date: 20081218
  Receipt Date: 20081217
  Transmission Date: 20090506
  Serious: Yes (Other)
  Sender: FDA-Public Use
  Company Number: JP-BAYER-200812865BYL

PATIENT
  Age: 76 Year
  Sex: Female
  Weight: 44 kg

DRUGS (9)
  1. NEXAVAR [Suspect]
     Indication: RENAL CELL CARCINOMA STAGE IV
     Dosage: TOTAL DAILY DOSE: 800 MG  UNIT DOSE: 200 MG
     Route: 048
     Dates: start: 20080613, end: 20081106
  2. NEXAVAR [Suspect]
     Dosage: AS USED: 400 MG  UNIT DOSE: 200 MG
     Route: 048
     Dates: start: 20081203
  3. AMLODIN OD [Concomitant]
     Indication: HYPERTENSION
     Dosage: TOTAL DAILY DOSE: 2.5 MG  UNIT DOSE: 2.5 MG
     Route: 048
     Dates: start: 20080610
  4. CALONAL [Concomitant]
     Dosage: AS USED: 600 MG  UNIT DOSE: 200 MG
     Route: 048
     Dates: start: 20080612
  5. ACTONEL [Concomitant]
     Dosage: TOTAL DAILY DOSE: 2.5 MG  UNIT DOSE: 2.5 MG
     Route: 048
     Dates: start: 20080206
  6. ONEALFA [Concomitant]
     Dosage: TOTAL DAILY DOSE: 0.5 ?G
     Route: 048
     Dates: start: 20080206
  7. CYANOCOBALAMIN [Concomitant]
     Dosage: AS USED: 1000 ?G
     Route: 048
     Dates: start: 20080430
  8. NEUROTROPIN [Concomitant]
     Dosage: AS USED: 16 U
     Route: 048
     Dates: start: 20080430
  9. CELECOX [Concomitant]
     Dosage: AS USED: 200 MG
     Route: 048
     Dates: start: 20071227

REACTIONS (4)
  - BLOOD AMYLASE INCREASED [None]
  - CARDIAC FAILURE ACUTE [None]
  - HYPERTENSION [None]
  - LIPASE INCREASED [None]
